FAERS Safety Report 14003267 (Version 1)
Quarter: 2017Q3

REPORT INFORMATION
  Report Type: Spontaneous
  Country: DE (occurrence: DE)
  Receive Date: 20170922
  Receipt Date: 20170922
  Transmission Date: 20171128
  Serious: Yes (Death, Life-Threatening, Other)
  Sender: FDA-Public Use
  Company Number: DE-MERCK KGAA-2027443

PATIENT
  Age: 76 Year
  Sex: Female

DRUGS (5)
  1. PIPAMPERON [Concomitant]
     Active Substance: PIPAMPERONE HYDROCHLORIDE
  2. REMERGIL [Suspect]
     Active Substance: MIRTAZAPINE
     Dates: start: 201508
  3. NOVOTHYROX [Suspect]
     Active Substance: LEVOTHYROXINE SODIUM
     Indication: PRODUCT USED FOR UNKNOWN INDICATION
  4. SERTRALIN STADA [Suspect]
     Active Substance: SERTRALINE HYDROCHLORIDE
     Dates: start: 201506
  5. PARACETAMOL [Suspect]
     Active Substance: ACETAMINOPHEN

REACTIONS (1)
  - Completed suicide [Fatal]

NARRATIVE: CASE EVENT DATE: 20151031
